FAERS Safety Report 18229050 (Version 5)
Quarter: 2024Q4

REPORT INFORMATION
  Report Type: Report from Study
  Country: BR (occurrence: BR)
  Receive Date: 20200903
  Receipt Date: 20241217
  Transmission Date: 20250115
  Serious: Yes (Hospitalization, Other)
  Sender: BAYER HEALTHCARE PHARMACEUTICALS INC.
  Company Number: BR-BAYER-2020-105263

PATIENT
  Age: 26 Year
  Sex: Female

DRUGS (3)
  1. BETAFERON [Suspect]
     Active Substance: INTERFERON BETA-1B
     Indication: Secondary progressive multiple sclerosis
     Dosage: QOD
     Dates: start: 2006
  2. LAMOTRIGINE [Concomitant]
     Active Substance: LAMOTRIGINE
     Indication: Seizure
     Dosage: 2 DF, QD
  3. VITAMINA D [COLECALCIFEROL] [Concomitant]
     Indication: Vitamin supplementation
     Dosage: UNK

REACTIONS (24)
  - Seizure [None]
  - Dementia [Not Recovered/Not Resolved]
  - Disorganised speech [None]
  - Urinary incontinence [None]
  - Anal incontinence [None]
  - Depression [None]
  - Emotional distress [Recovered/Resolved with Sequelae]
  - Crying [Recovered/Resolved with Sequelae]
  - Depressed mood [None]
  - Gait disturbance [Not Recovered/Not Resolved]
  - Coordination abnormal [None]
  - Muscular weakness [None]
  - Fall [None]
  - Weight increased [None]
  - Joint swelling [None]
  - Cardiac disorder [None]
  - Urinary tract infection [None]
  - Pyrexia [None]
  - Choking [None]
  - Epilepsy [None]
  - Emotional disorder [Recovered/Resolved]
  - Mobility decreased [Not Recovered/Not Resolved]
  - Dysphagia [Not Recovered/Not Resolved]
  - Visual impairment [Unknown]

NARRATIVE: CASE EVENT DATE: 20170101
